FAERS Safety Report 5859704-6 (Version None)
Quarter: 2008Q3

REPORT INFORMATION
  Report Type: 
  Country: None (occurrence: None)
  Receive Date: 20080827
  Receipt Date: 20080813
  Transmission Date: 20090109
  Serious: Yes (Hospitalization, Other)
  Sender: FDA-Public Use
  Company Number: US-BRISTOL-MYERS SQUIBB COMPANY-14300099

PATIENT
  Age: 67 Year
  Sex: Male
  Weight: 60 kg

DRUGS (3)
  1. ERBITUX [Suspect]
     Indication: PHARYNGEAL CANCER STAGE UNSPECIFIED
     Dosage: STARTED 17JUN08.RECEIVED 440MG TOTAL ON 5AUG08,8TH AND FINAL DOSE.400MG/M2 ON W1 AND 250MG/M2 W2-8.
     Route: 042
     Dates: start: 20080715, end: 20080715
  2. CISPLATIN [Suspect]
     Indication: PHARYNGEAL CANCER STAGE UNSPECIFIED
     Dosage: STARTED ON 17JUN08. 100MG/M2 DAY1+22. SECOND AND FINAL DOSE GIVEN ON 15JUL08
     Dates: start: 20080715, end: 20080715
  3. RADIOTHERAPY [Suspect]
     Indication: PHARYNGEAL CANCER STAGE UNSPECIFIED
     Dosage: 7013 DF=7013 CGY. NO. OF FRACTIONS 35. NUMBER OF ELASPSED DAYS 42. LAST TREATMENT DATE 05AUG08

REACTIONS (5)
  - ALANINE AMINOTRANSFERASE INCREASED [None]
  - FEBRILE NEUTROPENIA [None]
  - LYMPHOPENIA [None]
  - STOMATITIS [None]
  - WHITE BLOOD CELL COUNT DECREASED [None]
